FAERS Safety Report 21543790 (Version 1)
Quarter: 2022Q4

REPORT INFORMATION
  Report Type: Spontaneous
  Country: None (occurrence: US)
  Receive Date: 20221102
  Receipt Date: 20221102
  Transmission Date: 20230113
  Serious: No
  Sender: FDA-Public Use
  Company Number: US-Breckenridge Pharmaceutical, Inc.-2134431

PATIENT

DRUGS (1)
  1. DULOXETINE [Suspect]
     Active Substance: DULOXETINE
     Indication: Trigeminal neuropathy
     Route: 048

REACTIONS (4)
  - Alopecia [Unknown]
  - Malaise [Unknown]
  - Somnolence [Unknown]
  - Somnolence [Unknown]
